FAERS Safety Report 23669857 (Version 1)
Quarter: 2024Q1

REPORT INFORMATION
  Report Type: Spontaneous
  Country: US (occurrence: US)
  Receive Date: 20240325
  Receipt Date: 20240325
  Transmission Date: 20240410
  Serious: No
  Sender: FDA-Public Use
  Company Number: US-GALDERMA-US2024004554

PATIENT

DRUGS (5)
  1. DIFFERIN GEL [Suspect]
     Active Substance: ADAPALENE
     Indication: Acne
     Dosage: 1 DOSAGE FORM, BID
     Route: 061
     Dates: start: 20240309, end: 20240309
  2. DIFFERIN GEL [Suspect]
     Active Substance: ADAPALENE
     Dosage: 1 DOSAGE FORM, QD IN THE MORNING
     Route: 061
     Dates: start: 20240310, end: 20240312
  3. COSMETICS [Suspect]
     Active Substance: COSMETICS
     Indication: Acne
     Dosage: 1 DOSAGE FORM, TID
     Route: 061
     Dates: start: 20240309, end: 20240309
  4. COSMETICS [Suspect]
     Active Substance: COSMETICS
     Dosage: 1 DOSAGE FORM, BID
     Route: 061
     Dates: start: 20240310, end: 202403
  5. COSMETICS [Suspect]
     Active Substance: COSMETICS
     Dosage: 1 DOSAGE FORM, QD MORNING
     Route: 061
     Dates: start: 20240311, end: 20240312

REACTIONS (8)
  - Skin irritation [Recovering/Resolving]
  - Erythema [Recovering/Resolving]
  - Skin exfoliation [Recovering/Resolving]
  - Skin burning sensation [Recovered/Resolved]
  - Dry skin [Recovering/Resolving]
  - Product use in unapproved indication [Recovered/Resolved]
  - Inappropriate schedule of product administration [Recovered/Resolved]
  - Overdose [Recovered/Resolved]

NARRATIVE: CASE EVENT DATE: 20240309
